FAERS Safety Report 6306499-8 (Version None)
Quarter: 2009Q3

REPORT INFORMATION
  Report Type: 
  Country: None (occurrence: None)
  Receive Date: 20090812
  Receipt Date: 20090803
  Transmission Date: 20100115
  Serious: Yes (Death, Life-Threatening, Hospitalization)
  Sender: FDA-Public Use
  Company Number: IN-BRISTOL-MYERS SQUIBB COMPANY-14735096

PATIENT
  Age: 58 Year
  Sex: Male
  Weight: 58 kg

DRUGS (2)
  1. ERBITUX [Suspect]
     Indication: HEAD AND NECK CANCER
     Dosage: 16APR09-16APR09:600 MG 23APR09:400 MG RECENT INF:21MAY09 5 CYCLES (WEEKLY DOSE)
     Route: 042
     Dates: start: 20090416
  2. RADIATION THERAPY [Concomitant]
     Indication: HEAD AND NECK CANCER
     Dosage: 1DF=61.2 GY (34 OF 35 PLANNED FRACTIONS) STOP DATE: 6JUN09
     Dates: start: 20090423

REACTIONS (4)
  - HYPOKALAEMIA [None]
  - HYPONATRAEMIA [None]
  - RASH [None]
  - SEPSIS [None]
